FAERS Safety Report 4588241-4 (Version None)
Quarter: 2005Q1

REPORT INFORMATION
  Report Type: 
  Country: None (occurrence: None)
  Receive Date: 20050221
  Receipt Date: 20050208
  Transmission Date: 20050727
  Serious: Yes (Other)
  Sender: FDA-Public Use
  Company Number: FR-ROCHE-395126

PATIENT
  Age: 46 Year
  Sex: Male

DRUGS (9)
  1. CELLCEPT [Suspect]
     Indication: RENAL TRANSPLANT
     Route: 065
     Dates: start: 20040406
  2. CELLCEPT [Suspect]
     Route: 065
     Dates: start: 20040511
  3. CELLCEPT [Suspect]
     Route: 065
     Dates: start: 20040622
  4. CELLCEPT [Suspect]
     Route: 065
     Dates: start: 20040713
  5. ROVALCYTE [Suspect]
     Indication: ANTIVIRAL PROPHYLAXIS
     Route: 048
     Dates: end: 20040629
  6. BACTRIM [Suspect]
     Indication: INFECTION PROPHYLAXIS
     Route: 065
     Dates: end: 20040624
  7. PROGRAF [Concomitant]
  8. CORTANCYL [Concomitant]
  9. OMEPRAZOLE [Concomitant]

REACTIONS (1)
  - AGRANULOCYTOSIS [None]
